FAERS Safety Report 4957481-4 (Version None)
Quarter: 2006Q1

REPORT INFORMATION
  Report Type: 
  Country: None (occurrence: None)
  Receive Date: 20060328
  Receipt Date: 20060328
  Transmission Date: 20060701
  Serious: No
  Sender: FDA-Public Use
  Company Number: None

PATIENT
  Age: 89 Year
  Sex: Male
  Weight: 64.8644 kg

DRUGS (1)
  1. MIRAPEX [Suspect]
     Dosage: 0.125 MG BID ORAL (PO)
     Route: 048
     Dates: start: 20060318, end: 20060319

REACTIONS (4)
  - DYSKINESIA [None]
  - MUSCLE TWITCHING [None]
  - TRISMUS [None]
  - UNRESPONSIVE TO VERBAL STIMULI [None]
